FAERS Safety Report 24093992 (Version 1)
Quarter: 2024Q3

REPORT INFORMATION
  Report Type: Report from Study
  Country: US (occurrence: US)
  Receive Date: 20240716
  Receipt Date: 20240716
  Transmission Date: 20241017
  Serious: Yes (Hospitalization)
  Sender: JOHNSON AND JOHNSON
  Company Number: US-JNJFOC-20240728329

PATIENT
  Age: 69 Year
  Sex: Male

DRUGS (1)
  1. SPRAVATO [Suspect]
     Active Substance: ESKETAMINE
     Indication: Depression
     Dosage: ^^84 MG, 11 TOTAL DOSES^^
     Dates: start: 20240429, end: 20240605

REACTIONS (2)
  - Clostridium difficile infection [Unknown]
  - Ageusia [Unknown]

NARRATIVE: CASE EVENT DATE: 20240101
